FAERS Safety Report 5511146-9 (Version None)
Quarter: 2007Q4

REPORT INFORMATION
  Report Type: 
  Country: None (occurrence: None)
  Receive Date: 20071107
  Receipt Date: 20071026
  Transmission Date: 20080405
  Serious: Yes (Disabling)
  Sender: FDA-Public Use
  Company Number: GXKR2007GB09243

PATIENT
  Age: 51 Year
  Sex: Female
  Weight: 60 kg

DRUGS (2)
  1. METRONIDAZOLE [Suspect]
     Indication: TOOTH ABSCESS
     Dosage: 200 MG, TID, ORAL
     Route: 048
     Dates: start: 20070927, end: 20070929
  2. VITAMINS NOS (VITAMINS NNOS) [Concomitant]

REACTIONS (4)
  - MALAISE [None]
  - PAIN IN EXTREMITY [None]
  - RASH GENERALISED [None]
  - VOMITING [None]
